FAERS Safety Report 5941087-4 (Version None)
Quarter: 2008Q4

REPORT INFORMATION
  Report Type: 
  Country: None (occurrence: None)
  Receive Date: 20081031
  Receipt Date: 20081020
  Transmission Date: 20090506
  Serious: Yes (Death, Other)
  Sender: FDA-Public Use
  Company Number: 2008MB000106

PATIENT
  Age: 74 Year
  Sex: Male

DRUGS (3)
  1. CEPHALEXIN [Suspect]
     Indication: URINARY TRACT INFECTION
     Dosage: ; PO
     Route: 048
  2. CEFUROXIME [Concomitant]
  3. GENTAMICIN [Concomitant]

REACTIONS (1)
  - MULTIPLE SYSTEM ATROPHY [None]
